FAERS Safety Report 4596156-0 (Version None)
Quarter: 2005Q1

REPORT INFORMATION
  Report Type: 
  Country: None (occurrence: None)
  Receive Date: 20050302
  Receipt Date: 20050221
  Transmission Date: 20050727
  Serious: Yes (Death)
  Sender: FDA-Public Use
  Company Number: GB-ROCHE-396204

PATIENT
  Age: 67 Year
  Sex: Female
  Weight: 71.8 kg

DRUGS (7)
  1. XELODA [Suspect]
     Route: 048
     Dates: start: 20041129, end: 20041212
  2. LANSOPRAZOLE [Concomitant]
     Route: 048
  3. SPIROLACTONE [Concomitant]
     Indication: ASCITES
     Route: 048
  4. FRUSEMIDE [Concomitant]
     Indication: ASCITES
     Route: 048
  5. DEXAMETHASONE [Concomitant]
     Route: 048
  6. MORPHINE [Concomitant]
     Route: 048
  7. CO CODAMOL [Concomitant]

REACTIONS (2)
  - CEREBRAL HAEMORRHAGE [None]
  - IDIOPATHIC THROMBOCYTOPENIC PURPURA [None]
